FAERS Safety Report 16962365 (Version 1)
Quarter: 2019Q4

REPORT INFORMATION
  Report Type: Spontaneous
  Country: PT (occurrence: PT)
  Receive Date: 20191025
  Receipt Date: 20191025
  Transmission Date: 20200122
  Serious: Yes (Death, Hospitalization)
  Sender: FDA-Public Use
  Company Number: PT-PFIZER INC-2019451594

PATIENT
  Age: 67 Year
  Sex: Male

DRUGS (1)
  1. TAFAMIDIS MEGLUMINE [Suspect]
     Active Substance: TAFAMIDIS MEGLUMINE
     Indication: CARDIAC AMYLOIDOSIS
     Dosage: 20 MG, 1X/DAY
     Route: 048
     Dates: start: 201908

REACTIONS (6)
  - Nausea [Not Recovered/Not Resolved]
  - Cardiac failure [Fatal]
  - Cardiac amyloidosis [Fatal]
  - Vomiting [Not Recovered/Not Resolved]
  - Duodenitis [Unknown]
  - Disease progression [Fatal]

NARRATIVE: CASE EVENT DATE: 201909
